FAERS Safety Report 23381904 (Version 1)
Quarter: 2024Q1

REPORT INFORMATION
  Report Type: Spontaneous
  Country: US (occurrence: US)
  Receive Date: 20240109
  Receipt Date: 20240109
  Transmission Date: 20240410
  Serious: No
  Sender: FDA-Public Use
  Company Number: US-BRISTOL-MYERS SQUIBB COMPANY-2024-002989

PATIENT
  Age: 73 Year
  Sex: Female

DRUGS (2)
  1. ELIQUIS [Interacting]
     Active Substance: APIXABAN
     Indication: Product used for unknown indication
     Route: 048
  2. FISH OIL [Interacting]
     Active Substance: FISH OIL
     Indication: Gastrooesophageal reflux disease

REACTIONS (2)
  - Gastrooesophageal reflux disease [Recovered/Resolved]
  - Drug interaction [Recovered/Resolved]
